FAERS Safety Report 7330018-0 (Version None)
Quarter: 2011Q1

REPORT INFORMATION
  Report Type: 
  Country: None (occurrence: None)
  Receive Date: 20110303
  Receipt Date: 20100909
  Transmission Date: 20110831
  Serious: Yes (Hospitalization, Other)
  Sender: FDA-Public Use
  Company Number: US-BAYER-201027657NA

PATIENT
  Sex: Female
  Weight: 77.098 kg

DRUGS (26)
  1. DARVOCET [Concomitant]
  2. MOM [Concomitant]
  3. YAZ [Suspect]
     Indication: ORAL CONTRACEPTION
  4. YASMIN [Suspect]
     Indication: ORAL CONTRACEPTION
  5. CYMBALTA [Concomitant]
     Indication: DEPRESSION
     Dosage: 30 MG, UNK
  6. TRAMADOL HYDROCHLORIDE [Concomitant]
  7. YASMIN [Suspect]
     Indication: MENSTRUAL CYCLE MANAGEMENT
     Dosage: UNK UNK, UNK
     Route: 048
     Dates: start: 20060301, end: 20091001
  8. MIRALAX [Concomitant]
  9. OCELLA [Suspect]
     Indication: MENSTRUAL CYCLE MANAGEMENT
     Dosage: UNK UNK, UNK
     Route: 048
     Dates: start: 20060301, end: 20090715
  10. REGLAN [Concomitant]
     Dosage: 10 MG, UNK
  11. UNCODEABLE ^UNCLASSIFIABLE^ [Concomitant]
     Indication: PAIN
     Dosage: UNK
     Dates: start: 20081201
  12. NEXIUM [Concomitant]
     Dosage: UNK
     Dates: start: 20080901
  13. ZOFRAN [Concomitant]
  14. LORTAB [Concomitant]
  15. DICYCLOMINE [Concomitant]
     Indication: ABDOMINAL PAIN UPPER
     Dosage: 10 MG, UNK
  16. YAZ [Suspect]
     Indication: MENSTRUAL CYCLE MANAGEMENT
     Dosage: UNK UNK, UNK
     Route: 048
     Dates: start: 20060301, end: 20090715
  17. OCELLA [Suspect]
     Indication: ORAL CONTRACEPTION
     Dosage: UNK
     Dates: start: 20080701, end: 20090101
  18. OCELLA [Suspect]
     Dosage: UNK
     Dates: start: 20090301, end: 20090701
  19. OCELLA [Suspect]
     Dosage: UNK
     Dates: start: 20090901
  20. BENTYL [Concomitant]
     Dosage: 20 MG, UNK
  21. NEXIUM [Concomitant]
     Dosage: 40 MG, UNK
  22. DILAUDID [Concomitant]
  23. VALIUM [Concomitant]
  24. UNCODEABLE ^UNCLASSIFIABLE^ [Concomitant]
  25. METOCLOPRAMIDE [Concomitant]
     Dosage: 5 MG, UNK
  26. REGLAN [Concomitant]
     Dosage: UNK
     Dates: start: 20080901

REACTIONS (16)
  - PROCEDURAL PAIN [None]
  - BACK PAIN [None]
  - CHOLELITHIASIS [None]
  - ANXIETY [None]
  - NAUSEA [None]
  - ABDOMINAL TENDERNESS [None]
  - BILIARY COLIC [None]
  - CHOLECYSTITIS CHRONIC [None]
  - SUICIDE ATTEMPT [None]
  - CHOLESTEROSIS [None]
  - BIPOLAR I DISORDER [None]
  - VOMITING [None]
  - ABDOMINAL PAIN UPPER [None]
  - GASTROOESOPHAGEAL REFLUX DISEASE [None]
  - CONVULSION [None]
  - ABDOMINAL PAIN [None]
